FAERS Safety Report 6173001-3 (Version None)
Quarter: 2009Q2

REPORT INFORMATION
  Report Type: 
  Country: None (occurrence: None)
  Receive Date: 20090430
  Receipt Date: 20090330
  Transmission Date: 20091009
  Serious: No
  Sender: FDA-Public Use
  Company Number: US-BAYER-200911024BCC

PATIENT
  Sex: Female
  Weight: 50 kg

DRUGS (1)
  1. MIDOL [Suspect]
     Indication: DYSMENORRHOEA
     Dosage: UNIT DOSE: 220 MG
     Route: 048
     Dates: start: 20090330

REACTIONS (4)
  - ASTHENIA [None]
  - DIZZINESS [None]
  - EAR PAIN [None]
  - HEADACHE [None]
